FAERS Safety Report 18092219 (Version 1)
Quarter: 2020Q3

REPORT INFORMATION
  Report Type: Spontaneous
  Country: US (occurrence: US)
  Receive Date: 20200730
  Receipt Date: 20200730
  Transmission Date: 20201103
  Serious: No
  Sender: FDA-Public Use
  Company Number: None

PATIENT
  Age: 79 Year
  Sex: Male
  Weight: 66 kg

DRUGS (20)
  1. ASPIRIN. [Concomitant]
     Active Substance: ASPIRIN
  2. MIRALAX [Concomitant]
     Active Substance: POLYETHYLENE GLYCOL 3350
  3. MULTIVITAMIN [Concomitant]
     Active Substance: VITAMINS
  4. ACYCLOVIR. [Concomitant]
     Active Substance: ACYCLOVIR
  5. ZOMETA [Concomitant]
     Active Substance: ZOLEDRONIC ACID
  6. NAPROXEN. [Concomitant]
     Active Substance: NAPROXEN
  7. OMEPRAZOLE. [Concomitant]
     Active Substance: OMEPRAZOLE
  8. PROCHLORPERAZINE. [Concomitant]
     Active Substance: PROCHLORPERAZINE
  9. DULCOLAX NOS [Concomitant]
     Active Substance: BISACODYL OR DOCUSATE SODIUM
  10. ONDANSETRON [Suspect]
     Active Substance: ONDANSETRON
     Indication: PLASMA CELL MYELOMA
     Dosage: ?          OTHER FREQUENCY:DAY 1 AND 3 PER WK;?
     Route: 048
     Dates: start: 20200629, end: 20200730
  11. CALTRATE 600+D PLUS MINERALS [Concomitant]
  12. TAMSULOSIN [Concomitant]
     Active Substance: TAMSULOSIN
  13. VITAMIN B12 [Concomitant]
     Active Substance: CYANOCOBALAMIN
  14. VITAMIN B6 [Concomitant]
     Active Substance: PYRIDOXINE HYDROCHLORIDE
  15. DEXAMETHASONE. [Suspect]
     Active Substance: DEXAMETHASONE
     Indication: PLASMA CELL MYELOMA
     Dosage: ?          OTHER FREQUENCY:DAY 1 AND 3 PER WK;?
     Route: 048
     Dates: start: 20200629, end: 20200730
  16. LISINOPRIL. [Concomitant]
     Active Substance: LISINOPRIL
  17. ALEVE [Concomitant]
     Active Substance: NAPROXEN SODIUM
  18. SYNTHROID [Concomitant]
     Active Substance: LEVOTHYROXINE SODIUM
  19. PERCOCET [Concomitant]
     Active Substance: ACETAMINOPHEN\OXYCODONE HYDROCHLORIDE
  20. SPECTRAVITE SENIOR [Concomitant]

REACTIONS (1)
  - Hospice care [None]

NARRATIVE: CASE EVENT DATE: 20200730
